FAERS Safety Report 4597268-8 (Version None)
Quarter: 2005Q1

REPORT INFORMATION
  Report Type: 
  Country: None (occurrence: None)
  Receive Date: 20050303
  Receipt Date: 20050221
  Transmission Date: 20050727
  Serious: Yes (Hospitalization)
  Sender: FDA-Public Use
  Company Number: GB-ABBOTT-05P-167-0291628-00

PATIENT
  Age: 56 Year
  Sex: Female

DRUGS (5)
  1. CLARITHROMYCIN [Suspect]
     Indication: LOWER RESPIRATORY TRACT INFECTION
     Route: 048
     Dates: start: 20050205, end: 20050205
  2. ATENOLOL [Concomitant]
     Indication: ANXIETY
     Route: 048
     Dates: start: 20020101
  3. ATENOLOL [Concomitant]
     Indication: HYPERTENSION
  4. THIAMINE [Concomitant]
     Indication: ALCOHOL WITHDRAWAL SYNDROME
     Route: 048
     Dates: start: 20050202
  5. B-KOMPLEX ^LECIVA^ [Concomitant]
     Indication: ALCOHOL WITHDRAWAL SYNDROME
     Route: 048
     Dates: start: 20050202

REACTIONS (4)
  - CHEST DISCOMFORT [None]
  - OXYGEN SATURATION DECREASED [None]
  - RASH [None]
  - WHEEZING [None]
